FAERS Safety Report 17157082 (Version 1)
Quarter: 2019Q4

REPORT INFORMATION
  Report Type: Spontaneous
  Country: US (occurrence: US)
  Receive Date: 20191216
  Receipt Date: 20191216
  Transmission Date: 20200122
  Serious: Yes (Other)
  Sender: FDA-Public Use
  Company Number: US-ELI_LILLY_AND_COMPANY-US201912002766

PATIENT
  Age: 62 Year
  Sex: Female
  Weight: 53.52 kg

DRUGS (1)
  1. HUMALOG [Suspect]
     Active Substance: INSULIN LISPRO
     Indication: DIABETES MELLITUS
     Dosage: 3 U, UNKNOWN
     Route: 065
     Dates: start: 2018

REACTIONS (8)
  - Pancreatic failure [Unknown]
  - Injection site pain [Unknown]
  - Feeling of body temperature change [Unknown]
  - Decreased appetite [Unknown]
  - Hepatic function abnormal [Unknown]
  - Renal impairment [Unknown]
  - Injection site haemorrhage [Unknown]
  - Adrenal disorder [Unknown]

NARRATIVE: CASE EVENT DATE: 201903
